FAERS Safety Report 8766609 (Version 1)
Quarter: 2012Q4

REPORT INFORMATION
  Report Type: 
  Country: US (occurrence: US)
  Receive Date: 20120831
  Receipt Date: 20120831
  Transmission Date: 20130627
  Serious: Yes (Hospitalization, Other)
  Sender: FDA-Public Use
  Company Number: US-ELI_LILLY_AND_COMPANY-US201208007932

PATIENT
  Age: 85 Year
  Sex: Female

DRUGS (2)
  1. HUMULIN NPH [Suspect]
     Indication: DIABETES MELLITUS
  2. JANUVIA [Concomitant]

REACTIONS (5)
  - Lung neoplasm malignant [Unknown]
  - Hip fracture [Unknown]
  - Knee operation [Unknown]
  - Macular degeneration [Unknown]
  - Gastrooesophageal reflux disease [Unknown]
